FAERS Safety Report 4521597-7 (Version None)
Quarter: 2004Q4

REPORT INFORMATION
  Report Type: 
  Country: None (occurrence: None)
  Receive Date: 20041208
  Receipt Date: 20041208
  Transmission Date: 20050328
  Serious: Yes (Other)
  Sender: FDA-Public Use
  Company Number: None

PATIENT
  Age: 21 Year
  Sex: Female
  Weight: 72.5755 kg

DRUGS (1)
  1. CEPHALEXIN [Suspect]
     Indication: PYELONEPHRITIS
     Dosage: 500 MG  QID   ORAL
     Route: 048
     Dates: start: 20031220, end: 20031222

REACTIONS (5)
  - BURNING SENSATION [None]
  - ERUCTATION [None]
  - PRURITUS [None]
  - RASH [None]
  - SENSATION OF FOREIGN BODY [None]
